FAERS Safety Report 9240800 (Version 1)
Quarter: 2013Q2

REPORT INFORMATION
  Report Type: Spontaneous
  Country: US (occurrence: US)
  Receive Date: 20130418
  Receipt Date: 20130418
  Transmission Date: 20140414
  Serious: No
  Sender: FDA-Public Use
  Company Number: US-ASTRAZENECA-2013SE21662

PATIENT
  Sex: Female

DRUGS (3)
  1. NEXIUM [Suspect]
     Route: 048
  2. OMEPRAZOLE [Suspect]
     Route: 048
  3. ZANTAC [Concomitant]

REACTIONS (5)
  - Gastrooesophageal reflux disease [Unknown]
  - Aphagia [Unknown]
  - Dyspepsia [Unknown]
  - Drug ineffective [Unknown]
  - Intentional drug misuse [Unknown]
